FAERS Safety Report 23141239 (Version 1)
Quarter: 2023Q4

REPORT INFORMATION
  Report Type: Spontaneous
  Country: US (occurrence: US)
  Receive Date: 20231103
  Receipt Date: 20231103
  Transmission Date: 20240110
  Serious: No
  Sender: FDA-Public Use
  Company Number: US-Blueprint Medicines Corporation-1631

PATIENT
  Sex: Female

DRUGS (1)
  1. AYVAKIT [Suspect]
     Active Substance: AVAPRITINIB
     Indication: Systemic mastocytosis
     Route: 065
     Dates: start: 20231010, end: 20231024

REACTIONS (9)
  - Anxiety [Unknown]
  - Decreased activity [Unknown]
  - Frequent bowel movements [Unknown]
  - Nervousness [Unknown]
  - Amnesia [Unknown]
  - Somnolence [Unknown]
  - Disturbance in attention [Unknown]
  - Agitation [Unknown]
  - Fatigue [Unknown]
